FAERS Safety Report 7412641-8 (Version None)
Quarter: 2011Q2

REPORT INFORMATION
  Report Type: 
  Country: None (occurrence: None)
  Receive Date: 20110413
  Receipt Date: 20110411
  Transmission Date: 20111010
  Serious: Yes (Other)
  Sender: FDA-Public Use
  Company Number: US-PFIZER INC-2011014485

PATIENT
  Sex: Male

DRUGS (1)
  1. CHANTIX [Suspect]
     Indication: SMOKING CESSATION THERAPY
     Dosage: 0.5 MG AND 1 MG
     Dates: start: 20090301, end: 20090601

REACTIONS (5)
  - DEPRESSION [None]
  - AGGRESSION [None]
  - ANXIETY [None]
  - SUICIDE ATTEMPT [None]
  - AMNESIA [None]
